FAERS Safety Report 5283992-0 (Version None)
Quarter: 2007Q2

REPORT INFORMATION
  Report Type: 
  Country: None (occurrence: None)
  Receive Date: 20070402
  Receipt Date: 20070321
  Transmission Date: 20071010
  Serious: Yes (Other)
  Sender: FDA-Public Use
  Company Number: SE-PFIZER INC-2007023936

PATIENT
  Age: 77 Year
  Sex: Male

DRUGS (11)
  1. LYRICA [Suspect]
     Indication: GENERALISED ANXIETY DISORDER
     Route: 048
  2. OMEPRAZOLE [Concomitant]
  3. METFORMIN [Concomitant]
  4. ACETYLSALICYLIC ACID SRT [Concomitant]
  5. ENALAPRIL MALEATE [Concomitant]
  6. RISPERIDONE [Concomitant]
  7. OXAZEPAM [Concomitant]
  8. ZOPICLONE [Concomitant]
  9. MIRTAZAPINE [Concomitant]
  10. ESCITALOPRAM [Concomitant]
  11. LACTULOSE [Concomitant]

REACTIONS (7)
  - ABDOMINAL DISTENSION [None]
  - BALANCE DISORDER [None]
  - DYSPNOEA [None]
  - JOINT SWELLING [None]
  - OEDEMA PERIPHERAL [None]
  - RENAL DISORDER [None]
  - VISION BLURRED [None]
